FAERS Safety Report 7510050-4 (Version None)
Quarter: 2011Q2

REPORT INFORMATION
  Report Type: 
  Country: None (occurrence: None)
  Receive Date: 20110527
  Receipt Date: 20100916
  Transmission Date: 20111010
  Serious: Yes (Other)
  Sender: FDA-Public Use
  Company Number: A0881499A

PATIENT
  Age: 30 Year
  Sex: Male

DRUGS (4)
  1. EPIVIR [Concomitant]
  2. VIRACEPT [Concomitant]
  3. VICODIN [Concomitant]
  4. RETROVIR [Suspect]
     Indication: HIV INFECTION
     Route: 048
     Dates: start: 19960101

REACTIONS (1)
  - ANAEMIA [None]
